FAERS Safety Report 21125385 (Version 2)
Quarter: 2022Q3

REPORT INFORMATION
  Report Type: Report from Study
  Country: DE (occurrence: DE)
  Receive Date: 20220725
  Receipt Date: 20220809
  Transmission Date: 20221027
  Serious: Yes (Other)
  Sender: FDA-Public Use
  Company Number: DE-NOVARTISPH-NVSC2022DE165863

PATIENT
  Sex: Male
  Weight: 75 kg

DRUGS (25)
  1. COSENTYX [Suspect]
     Active Substance: SECUKINUMAB
     Indication: Ankylosing spondylitis
     Dosage: 150 MG, QD
     Route: 065
     Dates: start: 20210920, end: 20210920
  2. COSENTYX [Suspect]
     Active Substance: SECUKINUMAB
     Dosage: 150 MG, QD
     Route: 065
     Dates: start: 20210927, end: 20210927
  3. COSENTYX [Suspect]
     Active Substance: SECUKINUMAB
     Dosage: 150 MG, QD
     Route: 065
     Dates: start: 20211004, end: 20211004
  4. COSENTYX [Suspect]
     Active Substance: SECUKINUMAB
     Dosage: 150 MG, QD
     Route: 065
     Dates: start: 20211011, end: 20211011
  5. COSENTYX [Suspect]
     Active Substance: SECUKINUMAB
     Dosage: 150 MG, QD
     Route: 065
     Dates: start: 20211018, end: 20211018
  6. COSENTYX [Suspect]
     Active Substance: SECUKINUMAB
     Dosage: 150 MG, QD
     Route: 065
     Dates: start: 20220213, end: 20220213
  7. COSENTYX [Suspect]
     Active Substance: SECUKINUMAB
     Dosage: 150 MG, QD
     Route: 065
     Dates: start: 20220313, end: 20220313
  8. COSENTYX [Suspect]
     Active Substance: SECUKINUMAB
     Dosage: 150 MG, QD
     Route: 065
     Dates: start: 20220414, end: 20220414
  9. COSENTYX [Suspect]
     Active Substance: SECUKINUMAB
     Dosage: 150 MG, QD
     Route: 065
     Dates: start: 20220530, end: 20220530
  10. COSENTYX [Suspect]
     Active Substance: SECUKINUMAB
     Dosage: 150 MG, QD
     Route: 065
     Dates: start: 20220629, end: 20220629
  11. ARCOXIA [Concomitant]
     Active Substance: ETORICOXIB
     Indication: Ankylosing spondylitis
     Dosage: 1 DOSAGE FORM, QD
     Route: 048
     Dates: start: 20210903
  12. TILIDINE [Concomitant]
     Active Substance: TILIDINE
     Indication: Ankylosing spondylitis
     Dosage: 1 DOSAGE FORM, BID
     Route: 048
     Dates: start: 2014
  13. PANTOPRAZOLE [Concomitant]
     Active Substance: PANTOPRAZOLE
     Indication: Prophylaxis
     Dosage: 1 DOSAGE FORM, QD
     Route: 048
     Dates: start: 2013
  14. RAMIPRIL [Concomitant]
     Active Substance: RAMIPRIL
     Indication: Hypertension
     Dosage: 1 DOSAGE FORM, QD (5 MG)
     Route: 048
     Dates: start: 2014, end: 20220304
  15. RAMIPRIL [Concomitant]
     Active Substance: RAMIPRIL
     Dosage: 1 DOSAGE FORM, QD (10 MG)
     Route: 048
     Dates: start: 20220305
  16. ZOLPIDEM [Concomitant]
     Active Substance: ZOLPIDEM TARTRATE
     Indication: Initial insomnia
     Dosage: 1 DOSAGE FORM, QD
     Route: 048
     Dates: start: 2012
  17. AMLODIPINE [Concomitant]
     Active Substance: AMLODIPINE BESYLATE
     Indication: Hypertension
     Dosage: 1 DOSAGE FORM, BID
     Route: 048
     Dates: start: 2016
  18. BISOPROLOL [Concomitant]
     Active Substance: BISOPROLOL
     Indication: Hypertension
     Dosage: 2 DOSAGE FORM, QD (IN THE MORNING)
     Route: 048
     Dates: start: 2020
  19. BISOPROLOL [Concomitant]
     Active Substance: BISOPROLOL
     Dosage: 1 DOSAGE FORM, QD (IN THE EVENING)
     Route: 048
     Dates: start: 2020
  20. SYMBICORT [Concomitant]
     Active Substance: BUDESONIDE\FORMOTEROL FUMARATE DIHYDRATE
     Indication: Asthma
     Dosage: 1 PUFF, QD
     Route: 055
     Dates: start: 2020
  21. ULUNAR [Concomitant]
     Indication: Asthma
     Dosage: 1 PUFF, QD
     Route: 055
     Dates: start: 2020
  22. ATORVASTATIN [Concomitant]
     Active Substance: ATORVASTATIN
     Indication: Hypercholesterolaemia
     Dosage: 1 DOSAGE FORM, QD
     Route: 048
     Dates: start: 20220305
  23. TORSEMIDE [Concomitant]
     Active Substance: TORSEMIDE
     Indication: Hypertension
     Dosage: 1 DOSAGE FORM, QD
     Route: 048
     Dates: start: 20220305, end: 20220615
  24. ASPIRIN [Concomitant]
     Active Substance: ASPIRIN
     Indication: Prophylaxis
     Dosage: 1 DOSAGE FORM, QD
     Route: 048
     Dates: start: 20220305
  25. PRASUGREL [Concomitant]
     Active Substance: PRASUGREL
     Indication: Coronary artery disease
     Dosage: 1 DOSAGE FORM, QD
     Route: 048
     Dates: start: 20220305

REACTIONS (3)
  - Polyneuropathy [Not Recovered/Not Resolved]
  - Dysaesthesia [Unknown]
  - Hypoaesthesia [Unknown]

NARRATIVE: CASE EVENT DATE: 20220201
